FAERS Safety Report 9005352 (Version 1)
Quarter: 2013Q1

REPORT INFORMATION
  Report Type: Report from Study
  Country: GB (occurrence: GB)
  Receive Date: 20130108
  Receipt Date: 20130108
  Transmission Date: 20140127
  Serious: Yes (Hospitalization)
  Sender: FDA-Public Use
  Company Number: GB-PFIZER INC-2013003474

PATIENT
  Age: 38 Year
  Sex: Female
  Weight: 98.4 kg

DRUGS (3)
  1. EPIRUBICIN HCL [Suspect]
     Indication: BREAST CANCER FEMALE
     Dosage: 160 MG, CYCLE 5
     Dates: start: 20121126
  2. CYCLOPHOSPHAMIDE [Suspect]
     Indication: BREAST CANCER FEMALE
     Dosage: 800 MG, CYCLE 5
     Dates: start: 20121126
  3. FLUOROURACIL [Suspect]
     Indication: BREAST CANCER FEMALE
     Dosage: 800 MG, CYCLE 5
     Dates: start: 20121126

REACTIONS (1)
  - Sepsis [Recovered/Resolved]
